FAERS Safety Report 9252018 (Version 1)
Quarter: 2013Q2

REPORT INFORMATION
  Report Type: Spontaneous
  Country: US (occurrence: US)
  Receive Date: 20130424
  Receipt Date: 20130424
  Transmission Date: 20140414
  Serious: No
  Sender: FDA-Public Use
  Company Number: US-PFIZER INC-2013125550

PATIENT
  Sex: 0

DRUGS (3)
  1. PROTONIX [Suspect]
     Dosage: 40 MG, 1X/DAY
  2. ZOLOFT [Suspect]
     Dosage: 50 MG, 3X/DAY
  3. NEURONTIN [Suspect]
     Dosage: 600 MG, 3X/DAY

REACTIONS (1)
  - Pain [Unknown]
